FAERS Safety Report 4406584-1 (Version None)
Quarter: 2004Q3

REPORT INFORMATION
  Report Type: 
  Country: None (occurrence: None)
  Receive Date: 20040723
  Receipt Date: 20040617
  Transmission Date: 20050211
  Serious: Yes (Hospitalization)
  Sender: FDA-Public Use
  Company Number: JP-GLAXOSMITHKLINE-B0336092A

PATIENT
  Age: 78 Year
  Sex: Female
  Weight: 45 kg

DRUGS (9)
  1. VALTREX [Suspect]
     Indication: HERPES ZOSTER
     Dosage: 1000MG THREE TIMES PER DAY
     Route: 048
     Dates: start: 20040609, end: 20040612
  2. OSTELUC [Suspect]
     Indication: RHEUMATOID ARTHRITIS
     Dosage: 1TAB TWICE PER DAY
  3. OMEPRAL [Concomitant]
     Indication: GASTRIC ULCER
     Dosage: 10MG PER DAY
     Route: 048
  4. VOLTAREN-XR [Concomitant]
     Route: 048
  5. LIPITOR [Concomitant]
     Dosage: 1TAB PER DAY
     Route: 048
  6. PREDONINE [Concomitant]
     Indication: RHEUMATOID ARTHRITIS
     Dosage: 5MG PER DAY
     Route: 048
     Dates: start: 19920101
  7. ONEALFA [Concomitant]
     Indication: RHEUMATOID ARTHRITIS
     Dosage: 1MCG PER DAY
     Route: 048
  8. GASMOTIN [Concomitant]
     Indication: GASTRIC ULCER
     Dosage: 3TAB PER DAY
     Route: 048
  9. ALOSENN [Concomitant]
     Route: 048

REACTIONS (6)
  - BLOOD CREATININE INCREASED [None]
  - BLOOD UREA INCREASED [None]
  - BLOOD URIC ACID INCREASED [None]
  - DEPRESSED LEVEL OF CONSCIOUSNESS [None]
  - RENAL IMPAIRMENT [None]
  - VOMITING [None]
